FAERS Safety Report 15394388 (Version 38)
Quarter: 2022Q3

REPORT INFORMATION
  Report Type: Other
  Country: CA (occurrence: CA)
  Receive Date: 20180918
  Receipt Date: 20220817
  Transmission Date: 20221027
  Serious: Yes (Other)
  Sender: FDA-Public Use
  Company Number: CA-002147023-PHHY2017CA182068

PATIENT
  Age: 64 Year
  Sex: Female

DRUGS (40)
  1. XOLAIR [Suspect]
     Active Substance: OMALIZUMAB
     Indication: Asthma
     Route: 058
     Dates: start: 20170524
  2. XOLAIR [Suspect]
     Active Substance: OMALIZUMAB
     Indication: Asthma
     Route: 058
     Dates: start: 20171205
  3. XOLAIR [Suspect]
     Active Substance: OMALIZUMAB
     Route: 058
     Dates: start: 20180522
  4. XOLAIR [Suspect]
     Active Substance: OMALIZUMAB
     Route: 058
     Dates: start: 20180816
  5. XOLAIR [Suspect]
     Active Substance: OMALIZUMAB
     Route: 058
     Dates: start: 20180906
  6. XOLAIR [Suspect]
     Active Substance: OMALIZUMAB
     Route: 058
     Dates: start: 20180921
  7. XOLAIR [Suspect]
     Active Substance: OMALIZUMAB
     Route: 058
     Dates: start: 20181017
  8. XOLAIR [Suspect]
     Active Substance: OMALIZUMAB
     Route: 058
     Dates: start: 20171108
  9. XOLAIR [Suspect]
     Active Substance: OMALIZUMAB
     Route: 058
     Dates: start: 20190321
  10. XOLAIR [Suspect]
     Active Substance: OMALIZUMAB
     Route: 058
     Dates: start: 20190523
  11. XOLAIR [Suspect]
     Active Substance: OMALIZUMAB
     Route: 058
     Dates: start: 20191004
  12. XOLAIR [Suspect]
     Active Substance: OMALIZUMAB
     Route: 058
     Dates: start: 20171107
  13. XOLAIR [Suspect]
     Active Substance: OMALIZUMAB
     Route: 058
  14. XOLAIR [Suspect]
     Active Substance: OMALIZUMAB
     Route: 058
     Dates: start: 20210818
  15. XOLAIR [Suspect]
     Active Substance: OMALIZUMAB
     Route: 058
     Dates: start: 20220104
  16. XOLAIR [Suspect]
     Active Substance: OMALIZUMAB
     Route: 058
     Dates: start: 20170629, end: 20220107
  17. XOLAIR [Suspect]
     Active Substance: OMALIZUMAB
     Route: 058
     Dates: start: 20170627, end: 20220127
  18. XOLAIR [Suspect]
     Active Substance: OMALIZUMAB
     Route: 058
  19. XOLAIR [Suspect]
     Active Substance: OMALIZUMAB
     Dosage: 150 MG
     Route: 058
     Dates: start: 20170629
  20. XOLAIR [Suspect]
     Active Substance: OMALIZUMAB
     Route: 065
     Dates: start: 20220524
  21. MORPHINE [Suspect]
     Active Substance: MORPHINE
     Indication: Product used for unknown indication
     Route: 065
  22. VENTOLIN [Suspect]
     Active Substance: ALBUTEROL SULFATE
     Indication: Dyspnoea
     Route: 065
  23. VENTOLIN [Suspect]
     Active Substance: ALBUTEROL SULFATE
     Indication: Asthma
     Dosage: 2 DF, PRN
     Route: 055
     Dates: start: 2002
  24. SPIRIVA [Concomitant]
     Active Substance: TIOTROPIUM BROMIDE MONOHYDRATE
     Indication: Asthma
     Dosage: 2 DF, QD
     Route: 055
     Dates: start: 201701
  25. ZENHALE [Concomitant]
     Active Substance: FORMOTEROL FUMARATE\MOMETASONE FUROATE
     Indication: Asthma
     Dosage: 2 DF, BID
     Route: 055
     Dates: start: 201701
  26. SINGULAIR [Concomitant]
     Active Substance: MONTELUKAST SODIUM
     Indication: Asthma
     Dosage: 1 DF, QD
     Route: 048
     Dates: start: 2007
  27. PREDNISONE [Concomitant]
     Active Substance: PREDNISONE
     Indication: Asthma
     Route: 048
     Dates: start: 20170628
  28. PREDNISONE [Concomitant]
     Active Substance: PREDNISONE
     Route: 065
  29. BUDESONIDE [Concomitant]
     Active Substance: BUDESONIDE
     Indication: Asthma
     Dosage: 1 DF, BID
     Route: 045
     Dates: start: 201705
  30. BUDESONIDE [Concomitant]
     Active Substance: BUDESONIDE
     Indication: Hypersensitivity
  31. CANDESARTAN [Concomitant]
     Active Substance: CANDESARTAN
     Indication: Hypertension
     Dosage: 1 DF, QD
     Route: 048
     Dates: start: 2009
  32. DILTIAZEM HYDROCHLORIDE [Concomitant]
     Active Substance: DILTIAZEM HYDROCHLORIDE
     Indication: Tachycardia
     Dosage: 1 DF, QD
     Route: 048
     Dates: start: 201607
  33. ONDANSETRON [Concomitant]
     Active Substance: ONDANSETRON
     Indication: Gastrooesophageal reflux disease
     Dosage: 1 DF, QD
     Route: 048
     Dates: start: 201701
  34. LYRICA [Concomitant]
     Active Substance: PREGABALIN
     Indication: Neuralgia
     Dosage: 1 DF, QD
     Route: 048
     Dates: start: 2002
  35. TYLENOL [Concomitant]
     Active Substance: ACETAMINOPHEN
     Indication: Headache
     Dosage: 1 DF, QD
     Route: 048
  36. CLOZAPINE [Concomitant]
     Active Substance: CLOZAPINE
     Indication: Product used for unknown indication
     Dosage: UNK UNK, PRN
     Route: 065
  37. OXYCODONE AND ACETAMINOPHEN [Concomitant]
     Active Substance: ACETAMINOPHEN\OXYCODONE HYDROCHLORIDE
  38. CYCLOBENZAPRINE [Concomitant]
     Active Substance: CYCLOBENZAPRINE
     Indication: Product used for unknown indication
     Dosage: UNK
  39. DULOXETINE [Concomitant]
     Active Substance: DULOXETINE
     Indication: Neuralgia
     Dosage: 30 MG, UNKNOWN
     Route: 065
  40. DULOXETINE [Concomitant]
     Active Substance: DULOXETINE
     Dosage: 60 MG, UNKNOWN
     Route: 065
     Dates: start: 20210617

REACTIONS (47)
  - Autoimmune disorder [Unknown]
  - Pancreatitis [Unknown]
  - Blood pressure systolic increased [Recovering/Resolving]
  - Type 2 diabetes mellitus [Unknown]
  - Cholecystitis [Recovered/Resolved]
  - Biliary colic [Recovered/Resolved]
  - Pneumonia [Recovered/Resolved]
  - Chest pain [Recovered/Resolved]
  - Lumbar vertebral fracture [Unknown]
  - Dyspnoea [Recovered/Resolved]
  - Back pain [Unknown]
  - Oropharyngeal pain [Unknown]
  - Migraine [Unknown]
  - Feeling abnormal [Unknown]
  - Illness [Unknown]
  - Feeling cold [Unknown]
  - Gingival recession [Unknown]
  - Hyperhidrosis [Unknown]
  - Pain [Unknown]
  - Gait disturbance [Unknown]
  - Inflammation [Unknown]
  - Musculoskeletal stiffness [Recovering/Resolving]
  - Oral disorder [Unknown]
  - Feeling of body temperature change [Recovered/Resolved]
  - Abdominal pain upper [Recovered/Resolved]
  - Weight decreased [Unknown]
  - Middle insomnia [Unknown]
  - Post procedural complication [Unknown]
  - Forced expiratory volume decreased [Not Recovered/Not Resolved]
  - Obstructive airways disorder [Unknown]
  - Influenza [Not Recovered/Not Resolved]
  - Headache [Unknown]
  - Nasopharyngitis [Unknown]
  - Pyrexia [Unknown]
  - Nausea [Not Recovered/Not Resolved]
  - Vomiting [Not Recovered/Not Resolved]
  - Exposure to allergen [Unknown]
  - Arthralgia [Unknown]
  - Fatigue [Unknown]
  - Weight increased [Unknown]
  - Heart rate increased [Recovering/Resolving]
  - Cough [Unknown]
  - Gastroenteritis viral [Recovered/Resolved]
  - Muscle spasms [Recovered/Resolved]
  - Therapeutic response decreased [Unknown]
  - Inappropriate schedule of product administration [Unknown]
  - Asthma [Not Recovered/Not Resolved]

NARRATIVE: CASE EVENT DATE: 20170601
